FAERS Safety Report 17286654 (Version 1)
Quarter: 2020Q1

REPORT INFORMATION
  Report Type: Spontaneous
  Country: US (occurrence: US)
  Receive Date: 20191231
  Receipt Date: 20191231
  Transmission Date: 20200409
  Serious: Yes (Hospitalization)
  Sender: FDA-Public Use
  Company Number: None

PATIENT
  Age: 66 Year
  Sex: Male

DRUGS (1)
  1. COSENTYX [Suspect]
     Active Substance: SECUKINUMAB
     Indication: PSORIASIS
     Dosage: ?          OTHER FREQUENCY:Q4WEEKS ;?
     Route: 058
     Dates: start: 20190312

REACTIONS (4)
  - Joint effusion [None]
  - Therapy cessation [None]
  - Meniscus injury [None]
  - Arthritis infective [None]

NARRATIVE: CASE EVENT DATE: 20191114
